FAERS Safety Report 19351435 (Version 1)
Quarter: 2021Q2

REPORT INFORMATION
  Report Type: Spontaneous
  Country: US (occurrence: US)
  Receive Date: 20210531
  Receipt Date: 20210531
  Transmission Date: 20210717
  Serious: No
  Sender: FDA-Public Use
  Company Number: US-SA-2021SA172958

PATIENT
  Age: 10 Year
  Sex: Male

DRUGS (4)
  1. VASELINE [PARAFFIN] [Concomitant]
     Active Substance: PARAFFIN
  2. DUPIXENT [Suspect]
     Active Substance: DUPILUMAB
     Indication: DERMATITIS ATOPIC
     Dosage: 200 MG, QOW
     Route: 058
     Dates: start: 202008
  3. FLUOCINONIDE?E [Concomitant]
     Active Substance: FLUOCINONIDE
  4. TACROLIMUS. [Concomitant]
     Active Substance: TACROLIMUS

REACTIONS (1)
  - Rash [Unknown]
